FAERS Safety Report 7673897-X (Version None)
Quarter: 2011Q3

REPORT INFORMATION
  Report Type: 
  Country: None (occurrence: None)
  Receive Date: 20110810
  Receipt Date: 20110214
  Transmission Date: 20111222
  Serious: Yes (Congenital Anomaly)
  Sender: FDA-Public Use
  Company Number: US-GLAXOSMITHKLINE-A0914918A

PATIENT
  Sex: Female
  Weight: 2.5 kg

DRUGS (1)
  1. PAXIL [Suspect]
     Indication: ANXIETY
     Dosage: 40MG PER DAY

REACTIONS (2)
  - ATRIAL SEPTAL DEFECT [None]
  - MATERNAL EXPOSURE DURING PREGNANCY [None]
